FAERS Safety Report 9681159 (Version 1)
Quarter: 2013Q4

REPORT INFORMATION
  Report Type: Spontaneous
  Country: US (occurrence: US)
  Receive Date: 20131111
  Receipt Date: 20131111
  Transmission Date: 20140711
  Serious: No
  Sender: FDA-Public Use
  Company Number: US-ENDO PHARMACEUTICALS INC.-PROF20120010

PATIENT
  Sex: Male
  Weight: 89.89 kg

DRUGS (2)
  1. PROPAFENONE HYDROCHLORIDE TABLETS 300MG [Suspect]
     Indication: ATRIAL FIBRILLATION
     Route: 048
     Dates: start: 1997
  2. CYMBALTA [Suspect]
     Indication: ARTHRITIS
     Route: 048
     Dates: start: 2012, end: 2012

REACTIONS (1)
  - Malaise [Recovered/Resolved]
